FAERS Safety Report 18677308 (Version 1)
Quarter: 2020Q4

REPORT INFORMATION
  Report Type: Spontaneous
  Country: MY (occurrence: MY)
  Receive Date: 20201229
  Receipt Date: 20201229
  Transmission Date: 20210114
  Serious: No
  Sender: FDA-Public Use
  Company Number: MY-LUPIN PHARMACEUTICALS INC.-2020-08194

PATIENT
  Age: 38 Year
  Sex: Female
  Weight: 49 kg

DRUGS (4)
  1. PERAMPANEL [Interacting]
     Active Substance: PERAMPANEL
     Dosage: UNK (DOSE DECREASED)
     Route: 065
  2. CLOBAZAM. [Suspect]
     Active Substance: CLOBAZAM
     Indication: SEIZURE
     Dosage: 5 MILLIGRAM, UNK
     Route: 065
  3. CARBAMAZEPINE. [Interacting]
     Active Substance: CARBAMAZEPINE
     Indication: SEIZURE
     Dosage: 400 MILLIGRAM, UNK
     Route: 065
  4. PERAMPANEL [Interacting]
     Active Substance: PERAMPANEL
     Indication: SEIZURE
     Dosage: 6 MILLIGRAM/KILOGRAM, UNK
     Route: 065

REACTIONS (5)
  - Dizziness [Unknown]
  - Drug interaction [Unknown]
  - Drug level decreased [Recovered/Resolved]
  - Somnolence [Unknown]
  - Speech disorder [Unknown]
